FAERS Safety Report 4395997-2 (Version None)
Quarter: 2004Q3

REPORT INFORMATION
  Report Type: 
  Country: None (occurrence: None)
  Receive Date: 20040708
  Receipt Date: 20040623
  Transmission Date: 20050211
  Serious: Yes (Death, Hospitalization)
  Sender: FDA-Public Use
  Company Number: 198746

PATIENT
  Age: 44 Year
  Sex: Female
  Weight: 77.1115 kg

DRUGS (11)
  1. AVONEX [Suspect]
     Indication: MULTIPLE SCLEROSIS
     Dosage: 30 MCG QW IM
     Route: 030
     Dates: start: 19980101, end: 20020301
  2. PERCOCET [Concomitant]
  3. LORTAB [Concomitant]
  4. COPAXONE [Concomitant]
  5. PREVACID [Concomitant]
  6. REQUIP [Concomitant]
  7. TRAMADOL HCL [Concomitant]
  8. ACETAMINOPHEN [Concomitant]
  9. BEXTRA [Concomitant]
  10. CLONAZEPAM [Concomitant]
  11. MIRAPEX [Concomitant]

REACTIONS (4)
  - COMPLETED SUICIDE [None]
  - CONDITION AGGRAVATED [None]
  - DEPRESSION [None]
  - SCOLIOSIS [None]
